FAERS Safety Report 4466463-0 (Version None)
Quarter: 2004Q4

REPORT INFORMATION
  Report Type: 
  Country: None (occurrence: None)
  Receive Date: 20041005
  Receipt Date: 20041004
  Transmission Date: 20050328
  Serious: Yes (Hospitalization)
  Sender: FDA-Public Use
  Company Number: NZ-MERCK-0410NZL00021

PATIENT
  Age: 52 Year
  Sex: Male

DRUGS (2)
  1. ASPIRIN [Concomitant]
     Route: 065
  2. VIOXX [Suspect]
     Route: 065
     Dates: start: 20030101

REACTIONS (1)
  - MYOCARDIAL RUPTURE [None]
